FAERS Safety Report 5691504-2 (Version None)
Quarter: 2008Q2

REPORT INFORMATION
  Report Type: 
  Country: None (occurrence: None)
  Receive Date: 20080401
  Receipt Date: 20080318
  Transmission Date: 20081010
  Serious: Yes (Hospitalization)
  Sender: FDA-Public Use
  Company Number: APP200800209

PATIENT
  Age: 56 Year
  Sex: Female
  Weight: 47 kg

DRUGS (3)
  1. HEPARIN SODIUM INJECTION [Suspect]
     Indication: HAEMODIALYSIS
     Dosage: 4000 USP UNITS, ADMINISTERED VIA DIALYSIS CATHETER, OTHER; VIA DIALYSIS CATHETER, OTHER
     Route: 050
     Dates: start: 20070501, end: 20071101
  2. HEPARIN SODIUM INJECTION [Suspect]
     Indication: HAEMODIALYSIS
     Dosage: 4000 USP UNITS, ADMINISTERED VIA DIALYSIS CATHETER, OTHER; VIA DIALYSIS CATHETER, OTHER
     Route: 050
     Dates: start: 20071101
  3. CHEMOTHERAPY [Concomitant]

REACTIONS (4)
  - DIZZINESS [None]
  - HAEMATEMESIS [None]
  - HEART RATE INCREASED [None]
  - HYPOTENSION [None]
